FAERS Safety Report 4692786-6 (Version None)
Quarter: 2005Q2

REPORT INFORMATION
  Report Type: 
  Country: None (occurrence: None)
  Receive Date: 20050617
  Receipt Date: 20050614
  Transmission Date: 20051028
  Serious: Yes (Other)
  Sender: FDA-Public Use
  Company Number: DE-MERCK-0506DEU00120

PATIENT
  Age: 16 Year
  Sex: Male

DRUGS (3)
  1. SINGULAIR [Suspect]
     Indication: ASTHMA
     Route: 048
  2. PHENOBARBITAL [Suspect]
     Route: 065
  3. [THERAPY UNSPECIFIED] [Concomitant]
     Indication: EPILEPSY
     Route: 065

REACTIONS (2)
  - DRUG INTERACTION [None]
  - EPILEPSY [None]
